FAERS Safety Report 5862629-3 (Version None)
Quarter: 2008Q3

REPORT INFORMATION
  Report Type: 
  Country: None (occurrence: None)
  Receive Date: 20080827
  Receipt Date: 20080827
  Transmission Date: 20090109
  Serious: Yes (Death)
  Sender: FDA-Public Use
  Company Number: None

PATIENT
  Age: 92 Year
  Sex: Male
  Weight: 88.905 kg

DRUGS (1)
  1. DIGITEK [Suspect]
     Indication: CARDIAC DISORDER
     Dosage: 1 TAB EVERY OTHER DAY  EVERY OTHER DAY  PO
     Route: 048
     Dates: start: 20040101, end: 20080414

REACTIONS (1)
  - CEREBROVASCULAR ACCIDENT [None]
